FAERS Safety Report 15321278 (Version 1)
Quarter: 2018Q3

REPORT INFORMATION
  Report Type: Spontaneous
  Country: DE (occurrence: DE)
  Receive Date: 20180827
  Receipt Date: 20180827
  Transmission Date: 20181010
  Serious: Yes (Hospitalization, Other)
  Sender: FDA-Public Use
  Company Number: DE-TEVA-2018-DE-925852

PATIENT
  Age: 77 Year
  Sex: Male

DRUGS (25)
  1. BUSCOPAN [Concomitant]
     Active Substance: BUTYLSCOPOLAMINE BROMIDE
     Dosage: 30 MILLIGRAM DAILY;
     Route: 048
     Dates: start: 20180403, end: 20180413
  2. SPIRIVA [Concomitant]
     Active Substance: TIOTROPIUM BROMIDE MONOHYDRATE
     Dosage: 18 MICROGRAM DAILY; TAKING FOR YEARS
     Route: 048
  3. VALSARTAN. [Concomitant]
     Active Substance: VALSARTAN
     Dosage: 160 MILLIGRAM DAILY;
     Route: 065
     Dates: start: 20180413
  4. SERTRALINE [Suspect]
     Active Substance: SERTRALINE HYDROCHLORIDE
     Dosage: 50 MILLIGRAM DAILY;
     Route: 048
     Dates: start: 201706, end: 20180420
  5. FORMOTEROL [Concomitant]
     Active Substance: FORMOTEROL
     Dosage: 24 MICROGRAM DAILY; TAKING FOR YEARS
     Route: 048
  6. PREDNISOLONE. [Concomitant]
     Active Substance: PREDNISOLONE
     Dosage: TAKING FOR YEARS?5?50 MG
     Route: 048
     Dates: end: 20180413
  7. VIGANTOLETTEN [Concomitant]
     Active Substance: CHOLECALCIFEROL
     Dosage: 1 DOSAGE FORMS DAILY;
     Route: 065
     Dates: start: 20180404
  8. CODIOVAN 160 MG / 12,5 MG FILMTABLETTEN [Concomitant]
     Dosage: 1 DOSAGE FORMS DAILY; 160/12,5 MG
     Route: 048
     Dates: start: 2013
  9. ALLOPURINOL. [Concomitant]
     Active Substance: ALLOPURINOL
     Dosage: 300 MILLIGRAM DAILY;
     Route: 048
     Dates: start: 2013
  10. PREDNISOLONE. [Concomitant]
     Active Substance: PREDNISOLONE
     Dosage: 10 ? 20MG
     Route: 048
     Dates: start: 20180414, end: 20180416
  11. AMLODIPINE [Concomitant]
     Active Substance: AMLODIPINE BESYLATE
     Route: 065
  12. ESPUMISAN [Concomitant]
     Active Substance: DIMETHICONE
     Dosage: 160 MILLIGRAM DAILY;
     Route: 048
     Dates: start: 20180330, end: 20180412
  13. ASPIRIN. [Suspect]
     Active Substance: ASPIRIN
     Dates: start: 20180409
  14. PANTOPRAZOL [Concomitant]
     Active Substance: PANTOPRAZOLE SODIUM
     Route: 048
     Dates: start: 20180421, end: 20180425
  15. MIFLONIDE [Concomitant]
     Active Substance: BUDESONIDE
     Dosage: 200 MILLIGRAM DAILY; TAKING FOR YEARS
     Route: 048
  16. CALCIUM [Concomitant]
     Active Substance: CALCIUM
     Dosage: 500 MILLIGRAM DAILY;
     Route: 048
     Dates: start: 20180404
  17. ASPIRIN. [Suspect]
     Active Substance: ASPIRIN
     Dosage: 100 MILLIGRAM DAILY;
     Route: 048
     Dates: start: 20180430
  18. PANTOPRAZOL [Concomitant]
     Active Substance: PANTOPRAZOLE SODIUM
     Route: 065
     Dates: start: 20180426
  19. FRAGMIN [Concomitant]
     Active Substance: DALTEPARIN SODIUM
     Dosage: 5000 IU (INTERNATIONAL UNIT) DAILY;
     Route: 058
     Dates: start: 20180327, end: 20180405
  20. BIFITERAL [Concomitant]
     Active Substance: LACTULOSE
     Dosage: 7000 MILLIGRAM DAILY;
     Route: 048
     Dates: start: 20180329, end: 20180413
  21. NOVALGIN (METAMIZOLE SODIUM) [Concomitant]
     Active Substance: METAMIZOLE SODIUM
     Dosage: 2250 MILLIGRAM DAILY;
     Route: 048
     Dates: start: 20180329, end: 20180412
  22. PREDNISOLONE. [Concomitant]
     Active Substance: PREDNISOLONE
     Route: 048
     Dates: start: 20180421
  23. PANTOPRAZOL [Concomitant]
     Active Substance: PANTOPRAZOLE SODIUM
     Dosage: 40 MILLIGRAM DAILY; TAKING FOR YEARS
     Route: 048
     Dates: end: 20180412
  24. LEVOFLOXACIN. [Concomitant]
     Active Substance: LEVOFLOXACIN
     Dosage: 500 MILLIGRAM DAILY;
     Route: 048
     Dates: start: 20180328, end: 20180405
  25. NOVALGIN (METAMIZOLE SODIUM) [Concomitant]
     Active Substance: METAMIZOLE SODIUM
     Route: 048
     Dates: start: 20180413, end: 20180425

REACTIONS (2)
  - Haemorrhage [Recovered/Resolved]
  - Haemorrhagic disorder [Recovered/Resolved]

NARRATIVE: CASE EVENT DATE: 20180410
